FAERS Safety Report 7492492-9 (Version None)
Quarter: 2011Q2

REPORT INFORMATION
  Report Type: 
  Country: None (occurrence: None)
  Receive Date: 20110519
  Receipt Date: 20110506
  Transmission Date: 20111010
  Serious: Yes (Other)
  Sender: FDA-Public Use
  Company Number: US-BAYER-2011-039516

PATIENT
  Age: 18 Year
  Sex: Female
  Weight: 59 kg

DRUGS (2)
  1. NYQUIL [Concomitant]
     Dosage: UNK UNK, QD
     Route: 048
     Dates: start: 20110504, end: 20110504
  2. ALEVE (CAPLET) [Suspect]
     Indication: DYSMENORRHOEA
     Dosage: 220 MG, BID
     Route: 048
     Dates: start: 20110504, end: 20110505

REACTIONS (12)
  - CONFUSIONAL STATE [None]
  - HYPERHIDROSIS [None]
  - CHILLS [None]
  - DIZZINESS [None]
  - ABDOMINAL PAIN UPPER [None]
  - HYPOAESTHESIA FACIAL [None]
  - FEELING COLD [None]
  - FOREIGN BODY [None]
  - ABDOMINAL DISTENSION [None]
  - DELIRIUM [None]
  - PALLOR [None]
  - FAECES DISCOLOURED [None]
